FAERS Safety Report 4722487-7 (Version None)
Quarter: 2005Q3

REPORT INFORMATION
  Report Type: 
  Country: None (occurrence: None)
  Receive Date: 20050722
  Receipt Date: 20050511
  Transmission Date: 20060218
  Serious: No
  Sender: FDA-Public Use
  Company Number: US-GLAXOSMITHKLINE-A0558150A

PATIENT
  Age: 72 Year
  Sex: Female

DRUGS (4)
  1. AVANDIA [Suspect]
     Dosage: 4MG TWICE PER DAY
     Route: 048
  2. METFORMIN [Concomitant]
  3. GLYBURIDE [Concomitant]
  4. LIPITOR [Concomitant]

REACTIONS (1)
  - OEDEMA PERIPHERAL [None]
